FAERS Safety Report 14407799 (Version 3)
Quarter: 2021Q2

REPORT INFORMATION
  Report Type: Spontaneous
  Country: US (occurrence: US)
  Receive Date: 20180118
  Receipt Date: 20210525
  Transmission Date: 20210716
  Serious: Yes (Disabling)
  Sender: FDA-Public Use
  Company Number: US-TEVA-2018-US-846934

PATIENT
  Age: 44 Year
  Sex: Female
  Weight: 90.35 kg

DRUGS (18)
  1. DOCETAXEL SANOFI?AVENTIS [Suspect]
     Active Substance: DOCETAXEL
     Indication: INVASIVE DUCTAL BREAST CARCINOMA
     Dosage: 7 CYCLES (72MG FOR CYCLES 1,2, 3, 7 AND 71MG FOR CYCLES 4, 5, 6), EVERY WEEK
     Route: 042
     Dates: start: 20140306, end: 20140417
  2. DOCETAXEL SANOFI?AVENTIS [Suspect]
     Active Substance: DOCETAXEL
     Route: 042
  3. VITAMIN E [Concomitant]
     Active Substance: .ALPHA.-TOCOPHEROL
     Route: 065
     Dates: start: 201404
  4. DOCETAXEL ? MCKESSON CORPORATION [Suspect]
     Active Substance: DOCETAXEL
     Indication: INVASIVE DUCTAL BREAST CARCINOMA
     Dosage: 7 CYCLES (72MG FOR CYCLES 1,2, 3, 7 AND 71MG FOR CYCLES 4, 5, 6), EVERY WEEK
     Route: 042
     Dates: start: 20140306, end: 20140417
  5. DOCETAXEL ? ACCORD HEALTHCARE [Suspect]
     Active Substance: DOCETAXEL
     Indication: INVASIVE DUCTAL BREAST CARCINOMA
     Dosage: 7 CYCLES (72MG FOR CYCLES 1,2, 3, 7 AND 71MG FOR CYCLES 4, 5, 6), EVERY WEEK
     Route: 042
     Dates: start: 20140306, end: 20140417
  6. TAMOXIFEN CITRATE. [Concomitant]
     Active Substance: TAMOXIFEN CITRATE
     Indication: BREAST CANCER FEMALE
     Route: 048
  7. DOCETAXEL ? ACTAVIS [Suspect]
     Active Substance: DOCETAXEL
     Indication: INVASIVE DUCTAL BREAST CARCINOMA
     Dosage: 7 CYCLES (72MG FOR CYCLES 1,2, 3, 7 AND 71MG FOR CYCLES 4, 5, 6), EVERY WEEK
     Route: 042
     Dates: start: 20140306, end: 20140417
  8. HYDROCHLOROTHIAZIDE. [Concomitant]
     Active Substance: HYDROCHLOROTHIAZIDE
     Dosage: 12.5 MILLIGRAM DAILY;
     Route: 065
     Dates: start: 20170817
  9. CYCLOPHOSPHAMIDE. [Suspect]
     Active Substance: CYCLOPHOSPHAMIDE
     Route: 065
     Dates: start: 20131205, end: 20140116
  10. FLONASE [Concomitant]
     Active Substance: FLUTICASONE PROPIONATE
     Indication: RHINITIS ALLERGIC
     Route: 045
  11. DEXAMETHASONE. [Concomitant]
     Active Substance: DEXAMETHASONE
     Route: 065
  12. HYDROCHLOROTHIAZIDE. [Concomitant]
     Active Substance: HYDROCHLOROTHIAZIDE
     Dosage: 12.5 MILLIGRAM DAILY;
     Route: 065
     Dates: start: 201702
  13. AMLODIPINE BESYLATE. [Concomitant]
     Active Substance: AMLODIPINE BESYLATE
     Dosage: 10 MILLIGRAM DAILY;
     Route: 065
     Dates: start: 20170703
  14. ONDANSETRON [Concomitant]
     Active Substance: ONDANSETRON
     Route: 065
  15. TAXOL [Suspect]
     Active Substance: PACLITAXEL
     Route: 065
     Dates: start: 20140130, end: 20140227
  16. HERCEPTIN [Suspect]
     Active Substance: TRASTUZUMAB
     Route: 065
     Dates: start: 20140130, end: 20150122
  17. TRASTUZUMAB. [Suspect]
     Active Substance: TRASTUZUMAB
     Route: 065
  18. AMLODIPINE BESYLATE. [Concomitant]
     Active Substance: AMLODIPINE BESYLATE
     Dosage: 10 MILLIGRAM DAILY;
     Route: 065
     Dates: start: 201305

REACTIONS (6)
  - Madarosis [Not Recovered/Not Resolved]
  - Diffuse alopecia [Unknown]
  - Ageusia [Unknown]
  - Hair texture abnormal [Not Recovered/Not Resolved]
  - Hair colour changes [Not Recovered/Not Resolved]
  - Alopecia areata [Not Recovered/Not Resolved]

NARRATIVE: CASE EVENT DATE: 201404
